FAERS Safety Report 16053779 (Version 1)
Quarter: 2019Q1

REPORT INFORMATION
  Report Type: Spontaneous
  Country: US (occurrence: US)
  Receive Date: 20190308
  Receipt Date: 20190308
  Transmission Date: 20190418
  Serious: Yes (Other)
  Sender: FDA-Public Use
  Company Number: US-ASTRAZENECA-2019SE11039

PATIENT
  Age: 27971 Day
  Sex: Male

DRUGS (8)
  1. NEXIUM [Suspect]
     Active Substance: ESOMEPRAZOLE MAGNESIUM
     Route: 048
     Dates: start: 20150113
  2. PRILOSEC [Suspect]
     Active Substance: OMEPRAZOLE MAGNESIUM
     Route: 048
     Dates: start: 2005
  3. ASPIRIN. [Concomitant]
     Active Substance: ASPIRIN
  4. NITROSTAT [Concomitant]
     Active Substance: NITROGLYCERIN
  5. NEXIUM [Suspect]
     Active Substance: ESOMEPRAZOLE MAGNESIUM
     Route: 048
     Dates: start: 2005
  6. RANEXA [Concomitant]
     Active Substance: RANOLAZINE
  7. SIMVASTATIN. [Concomitant]
     Active Substance: SIMVASTATIN
  8. TRILIPIX [Concomitant]
     Active Substance: FENOFIBRIC ACID

REACTIONS (3)
  - Chronic kidney disease [Unknown]
  - Tubulointerstitial nephritis [Unknown]
  - Renal injury [Unknown]

NARRATIVE: CASE EVENT DATE: 20150428
